FAERS Safety Report 5072212-8 (Version None)
Quarter: 2006Q3

REPORT INFORMATION
  Report Type: 
  Country: None (occurrence: None)
  Receive Date: 20060801
  Receipt Date: 20060713
  Transmission Date: 20061208
  Serious: Yes (Other)
  Sender: FDA-Public Use
  Company Number: WAES 0607USA03876

PATIENT
  Sex: Male

DRUGS (3)
  1. DECADRON [Suspect]
     Indication: PROSTATE CANCER
     Dosage: 1 MG PM PO
     Route: 048
  2. ROCALTROL [Suspect]
     Indication: PROSTATE CANCER
     Dosage: 0.5 MICROGM PM PO
     Route: 048
  3. CARBOPLATIN [Suspect]
     Indication: PROSTATE CANCER
     Dosage: IV
     Route: 042

REACTIONS (1)
  - CONFUSIONAL STATE [None]
